FAERS Safety Report 8174072-5 (Version None)
Quarter: 2012Q1

REPORT INFORMATION
  Report Type: 
  Country: None (occurrence: None)
  Receive Date: 20120224
  Receipt Date: 20120216
  Transmission Date: 20120608
  Serious: Yes (Hospitalization)
  Sender: FDA-Public Use
  Company Number: 1000027565

PATIENT
  Age: 86 Year
  Sex: Female

DRUGS (9)
  1. ROZEREM (RAMELTEON) (RAMELTEON) [Concomitant]
  2. MEMANTINE HYDROCHLORIDE [Suspect]
     Indication: DEMENTIA ALZHEIMER'S TYPE
     Dosage: 20 MG (20 MG, 1 IN 1 D), ORAL
     Route: 048
     Dates: start: 20110811, end: 20111118
  3. ARICEPT D (DONEPEZIL HYDROCHLORIDE) (DONEPEZIL HYDROCHLORIDE) [Concomitant]
  4. SYMMETREL [Suspect]
     Indication: CEREBRAL INFARCTION
     Dosage: 100 MG (50 MG, 2 IN 1 D), ORAL  50 MG (25 MG, 2 IN 1 D), ORAL
     Route: 048
     Dates: start: 20110609, end: 20110622
  5. SYMMETREL [Suspect]
     Indication: CEREBRAL INFARCTION
     Dosage: 100 MG (50 MG, 2 IN 1 D), ORAL  50 MG (25 MG, 2 IN 1 D), ORAL
     Route: 048
     Dates: start: 20110623, end: 20111026
  6. MEMANTINE HYDROCHLORIDE [Suspect]
     Indication: DEMENTIA ALZHEIMER'S TYPE
     Dosage: 5 MG (5 MG, 1 IN 1 D), ORAL   10 MG (10 MG, 1 IN 1 D), ORAL   15 MG (15 MG, 1 IN 1 D), ORAL
     Route: 048
     Dates: start: 20110804, end: 20110810
  7. MEMANTINE HYDROCHLORIDE [Suspect]
     Indication: DEMENTIA ALZHEIMER'S TYPE
     Dosage: 5 MG (5 MG, 1 IN 1 D), ORAL   10 MG (10 MG, 1 IN 1 D), ORAL   15 MG (15 MG, 1 IN 1 D), ORAL
     Route: 048
     Dates: start: 20110728, end: 20110803
  8. MEMANTINE HYDROCHLORIDE [Suspect]
     Indication: DEMENTIA ALZHEIMER'S TYPE
     Dosage: 5 MG (5 MG, 1 IN 1 D), ORAL   10 MG (10 MG, 1 IN 1 D), ORAL   15 MG (15 MG, 1 IN 1 D), ORAL
     Route: 048
     Dates: start: 20110721, end: 20110727
  9. SYMMETREL [Suspect]
     Indication: CEREBRAL INFARCTION
     Dosage: 100 MG (50 MG, 2 IN 1 D), ORAL
     Route: 048
     Dates: start: 20111027

REACTIONS (4)
  - CONVULSION [None]
  - ALTERED STATE OF CONSCIOUSNESS [None]
  - SOMNOLENCE [None]
  - DECREASED ACTIVITY [None]
